FAERS Safety Report 25612002 (Version 1)
Quarter: 2025Q3

REPORT INFORMATION
  Report Type: Spontaneous
  Country: CN (occurrence: CN)
  Receive Date: 20250728
  Receipt Date: 20250728
  Transmission Date: 20251020
  Serious: Yes (Hospitalization, Other)
  Sender: BAYER HEALTHCARE PHARMACEUTICALS INC.
  Company Number: CN-BAYER-2025A098479

PATIENT
  Age: 45 Year
  Sex: Female
  Weight: 64 kg

DRUGS (1)
  1. MIRENA [Suspect]
     Active Substance: LEVONORGESTREL
     Indication: Endometrial hyperplasia
     Dosage: 20?G/DAY
     Route: 015
     Dates: start: 202101, end: 20250713

REACTIONS (4)
  - Endometrial cancer [Recovering/Resolving]
  - Heavy menstrual bleeding [Recovering/Resolving]
  - Vaginal haemorrhage [None]
  - Device use issue [None]

NARRATIVE: CASE EVENT DATE: 20210101
